FAERS Safety Report 7688962-0 (Version None)
Quarter: 2011Q3

REPORT INFORMATION
  Report Type: 
  Country: None (occurrence: None)
  Receive Date: 20110817
  Receipt Date: 20110811
  Transmission Date: 20111222
  Serious: Yes (Death, Hospitalization, Other)
  Sender: FDA-Public Use
  Company Number: PHHY2011CH65574

PATIENT
  Sex: Female

DRUGS (22)
  1. CIPROFLAXACIN [Concomitant]
     Dosage: 1000 MG
  2. PIPERACILLIN AND TAZOBACTAM [Concomitant]
     Dosage: 13.5 MG
     Route: 042
  3. TARGOCID [Concomitant]
     Dosage: 200 MG
     Route: 048
  4. CELLCEPT [Concomitant]
     Dosage: UNK UKN, UNK
  5. MOTILIUM [Concomitant]
     Dosage: 30 MG
  6. AMPHOTERICIN B [Concomitant]
     Dosage: UNK UKN, UNK
  7. CYCLOSPORINE [Suspect]
     Dosage: 240 MG
  8. FRAGMIN [Concomitant]
     Dosage: UNK UKN, UNK
  9. MAGNESIOCARD [Concomitant]
     Dosage: 10 MMOL/L
  10. NEXIUM [Concomitant]
     Dosage: 80 MG
     Route: 048
  11. VALPROIC ACID [Concomitant]
     Dosage: 1800 MG
  12. FUNGIZONE [Concomitant]
     Dosage: UNK UKN, UNK
  13. PREDNISON GALEPHARM [Concomitant]
     Dosage: 5 MG
     Route: 048
  14. TRANSIPEG [Concomitant]
     Dosage: UNK UKN, UNK
  15. URSOCHOL [Concomitant]
     Dosage: 150 MG
     Route: 048
  16. BACTRIM [Concomitant]
     Dosage: 960 MG THREE TIMES PER WEEK
  17. CALCIMAGON-D3 [Concomitant]
     Dosage: UNK UKN, BID
  18. GASTROGRAFIN [Concomitant]
     Dosage: UNK UKN, UNK
  19. PREDNISON GALEPHARM [Concomitant]
     Dosage: 20 MG
     Route: 048
  20. SPORANOX [Concomitant]
     Dosage: 400 MG
     Route: 048
  21. VALCYTE [Concomitant]
     Dosage: 900 MG
  22. EPHYNAL [Concomitant]
     Dosage: 300 MG

REACTIONS (4)
  - BRAIN HYPOXIA [None]
  - INTRAVENTRICULAR HAEMORRHAGE [None]
  - INTRACRANIAL PRESSURE INCREASED [None]
  - POSTERIOR REVERSIBLE ENCEPHALOPATHY SYNDROME [None]
